FAERS Safety Report 7129519-X (Version None)
Quarter: 2010Q4

REPORT INFORMATION
  Report Type: 
  Country: None (occurrence: None)
  Receive Date: 20101130
  Receipt Date: 20101123
  Transmission Date: 20110411
  Serious: Yes (Hospitalization)
  Sender: FDA-Public Use
  Company Number: US-US-EMD SERONO, INC.-233009J09USA

PATIENT
  Sex: Female
  Weight: 91 kg

DRUGS (6)
  1. REBIF [Suspect]
     Indication: MULTIPLE SCLEROSIS
     Route: 058
     Dates: start: 20090914, end: 20091016
  2. REBIF [Suspect]
     Route: 058
     Dates: start: 20091109
  3. AZURETTE [Concomitant]
     Indication: CONTRACEPTION
     Route: 065
     Dates: start: 20090101
  4. EXCEDRIN (MIGRAINE) [Concomitant]
     Indication: HEADACHE
     Route: 065
     Dates: start: 20091016
  5. IBUPROFEN [Concomitant]
     Indication: PREMEDICATION
     Route: 065
  6. BIRTH CONTROL [Concomitant]
     Indication: CONTRACEPTION
     Dates: start: 19940101

REACTIONS (3)
  - CHEST DISCOMFORT [None]
  - CHEST PAIN [None]
  - INFLUENZA LIKE ILLNESS [None]
